FAERS Safety Report 25842883 (Version 2)
Quarter: 2025Q3

REPORT INFORMATION
  Report Type: Spontaneous
  Country: US (occurrence: US)
  Receive Date: 20250924
  Receipt Date: 20250926
  Transmission Date: 20251021
  Serious: Yes (Other)
  Sender: PFIZER
  Company Number: US-PFIZER INC-202500187288

PATIENT
  Age: 56 Year
  Sex: Female
  Weight: 74.84 kg

DRUGS (1)
  1. XELJANZ XR [Suspect]
     Active Substance: TOFACITINIB CITRATE
     Indication: Rheumatoid arthritis
     Dosage: 11 MG, 1X/DAY
     Route: 048
     Dates: start: 2021

REACTIONS (5)
  - Onycholysis [Unknown]
  - Nail injury [Unknown]
  - Onychomadesis [Unknown]
  - Onychomycosis [Recovered/Resolved]
  - Nail bed disorder [Not Recovered/Not Resolved]

NARRATIVE: CASE EVENT DATE: 20250921
